FAERS Safety Report 6919035-X (Version None)
Quarter: 2010Q3

REPORT INFORMATION
  Report Type: 
  Country: None (occurrence: None)
  Receive Date: 20100727
  Receipt Date: 20100625
  Transmission Date: 20110219
  Serious: Yes (Hospitalization)
  Sender: FDA-Public Use
  Company Number: A-NJ2010-37690

PATIENT
  Age: 41 Year
  Sex: Female

DRUGS (5)
  1. EPOPROSTENOL SODIUM [Suspect]
     Indication: PULMONARY ARTERIAL HYPERTENSION
     Dosage: 71.5 NG/KG, PER MIN, IV DRIP, 70.5 NG/KG, PER MIN, IV DRIP
     Route: 041
     Dates: start: 20100614, end: 20100619
  2. EPOPROSTENOL SODIUM [Suspect]
     Indication: PULMONARY ARTERIAL HYPERTENSION
     Dosage: 71.5 NG/KG, PER MIN, IV DRIP, 70.5 NG/KG, PER MIN, IV DRIP
     Route: 041
     Dates: start: 20100620, end: 20100623
  3. LASIX [Concomitant]
  4. AMBRISENTAN (AMBRISENTAN) [Concomitant]
  5. FLOLAN [Concomitant]

REACTIONS (2)
  - CONDITION AGGRAVATED [None]
  - RIGHT VENTRICULAR FAILURE [None]
